FAERS Safety Report 16302162 (Version 1)
Quarter: 2019Q2

REPORT INFORMATION
  Report Type: Spontaneous
  Country: US (occurrence: US)
  Receive Date: 20190406
  Receipt Date: 20190406
  Transmission Date: 20190711
  Serious: No
  Sender: FDA-Public Use
  Company Number: None

PATIENT
  Age: 68 Year
  Sex: Female

DRUGS (1)
  1. FORTEO [Suspect]
     Active Substance: TERIPARATIDE
     Route: 058
     Dates: start: 20180709

REACTIONS (3)
  - Osteonecrosis [None]
  - Tooth fracture [None]
  - Osteosarcoma [None]

NARRATIVE: CASE EVENT DATE: 20190406
